FAERS Safety Report 4374110-1 (Version None)
Quarter: 2004Q2

REPORT INFORMATION
  Report Type: 
  Country: None (occurrence: None)
  Receive Date: 20040607
  Receipt Date: 20040528
  Transmission Date: 20050107
  Serious: Yes (Death)
  Sender: FDA-Public Use
  Company Number: MX-ROCHE-369335

PATIENT
  Age: 77 Year
  Sex: Male

DRUGS (2)
  1. DOLAC [Suspect]
     Route: 030
     Dates: start: 20040115
  2. AMIKIN [Concomitant]
     Route: 042

REACTIONS (4)
  - HEPATIC FAILURE [None]
  - HYPOTENSION [None]
  - PLATELET COUNT DECREASED [None]
  - RENAL FAILURE ACUTE [None]
